FAERS Safety Report 24569265 (Version 1)
Quarter: 2024Q4

REPORT INFORMATION
  Report Type: Report from Study
  Country: TW (occurrence: TW)
  Receive Date: 20241031
  Receipt Date: 20241031
  Transmission Date: 20250115
  Serious: Yes (Hospitalization, Other)
  Sender: ALEXION PHARMACEUTICALS
  Company Number: TW-AstraZeneca-CH-00731648A

PATIENT

DRUGS (4)
  1. DURVALUMAB [Suspect]
     Active Substance: DURVALUMAB
     Dosage: 480 MILLIGRAM, Q4W
  2. DURVALUMAB [Suspect]
     Active Substance: DURVALUMAB
     Dosage: 480 MILLIGRAM, Q4W
  3. DURVALUMAB [Suspect]
     Active Substance: DURVALUMAB
     Dosage: 480 MILLIGRAM, Q4W
  4. DURVALUMAB [Suspect]
     Active Substance: DURVALUMAB
     Dosage: 480 MILLIGRAM, Q4W

REACTIONS (3)
  - Oedema [Unknown]
  - Blood disorder [Unknown]
  - Cholecystitis infective [Unknown]
